FAERS Safety Report 10084990 (Version 1)
Quarter: 2014Q2

REPORT INFORMATION
  Report Type: Report from Study
  Country: FR (occurrence: FR)
  Receive Date: 20140417
  Receipt Date: 20140417
  Transmission Date: 20141212
  Serious: Yes (Hospitalization)
  Sender: FDA-Public Use
  Company Number: FR-VERTEX PHARMACEUTICALS INC-2014-001965

PATIENT
  Age: 58 Year
  Sex: Male
  Weight: 74 kg

DRUGS (20)
  1. TELAPREVIR [Suspect]
     Indication: HEPATITIS C
     Dosage: 400 MG, UNK
     Route: 048
     Dates: start: 20130704, end: 20130925
  2. PEGASYS [Suspect]
     Indication: HEPATITIS C
     Dosage: ALSO DESCRIBED AS 45 UG A WEEK INITIATED ON 04-JUL-2013 TO 20-AUG-2013
     Route: 058
     Dates: start: 20130704, end: 20130820
  3. PEGASYS [Suspect]
     Dosage: 45 ?G, UNK
     Route: 058
     Dates: start: 201309
  4. COPEGUS [Suspect]
     Indication: HEPATITIS C
     Dosage: 800 MG, UNK
     Dates: start: 20130704, end: 20130820
  5. COPEGUS [Suspect]
     Dosage: 1 DF, UNK
  6. COPEGUS [Suspect]
     Dosage: 2 DF, UNK
     Dates: start: 201309
  7. MODIGRAF (TACROLIMUS) [Concomitant]
     Dates: start: 20120425
  8. CELLCEPT [Concomitant]
     Dates: start: 20120425
  9. KARDEGIC [Concomitant]
     Indication: THROMBOCYTOPENIA
  10. KARDEGIC [Concomitant]
     Indication: PROPHYLAXIS
  11. INIPOMP [Concomitant]
     Indication: GASTROOESOPHAGEAL REFLUX DISEASE
  12. INIPOMP [Concomitant]
     Dates: start: 20101111
  13. TARDYFERON [Concomitant]
     Indication: IRON DEFICIENCY
     Dosage: 2 DF, UNK
  14. MAGNE-B6 [Concomitant]
     Indication: MAGNESIUM DEFICIENCY
     Dates: start: 20070222
  15. ZARZIO [Concomitant]
     Indication: NEUTROPENIA
     Dosage: DOSE: 48000 000 IU A WEEK
     Dates: start: 201302
  16. NEORECORMON [Concomitant]
     Indication: ANAEMIA
     Dates: start: 201308
  17. ELTROMBOPAG [Concomitant]
     Indication: THROMBOCYTOPENIA
  18. CETIRIZINE [Concomitant]
     Dosage: 5 MG EVERY EVENING IF NECCESSARY
  19. TITANOREINE (NOS) [Concomitant]
     Indication: HAEMORRHOIDS
  20. PARACETAMOL [Concomitant]

REACTIONS (4)
  - Drug intolerance [Recovered/Resolved]
  - Pancytopenia [Recovered/Resolved]
  - Blood creatinine increased [Unknown]
  - Off label use [Unknown]
